FAERS Safety Report 19158490 (Version 1)
Quarter: 2021Q2

REPORT INFORMATION
  Report Type: Spontaneous
  Country: US (occurrence: US)
  Receive Date: 20210419
  Receipt Date: 20210419
  Transmission Date: 20210717
  Serious: No
  Sender: FDA-Public Use
  Company Number: None

PATIENT

DRUGS (1)
  1. AMBRISENTAN [Suspect]
     Active Substance: AMBRISENTAN
     Indication: PULMONARY ARTERIAL HYPERTENSION
     Route: 048

REACTIONS (8)
  - Wheezing [None]
  - Fatigue [None]
  - Back pain [None]
  - Memory impairment [None]
  - Oxygen saturation decreased [None]
  - Dizziness [None]
  - Dyspnoea [None]
  - Anxiety [None]
